FAERS Safety Report 7141389-2 (Version None)
Quarter: 2010Q4

REPORT INFORMATION
  Report Type: 
  Country: None (occurrence: None)
  Receive Date: 20101207
  Receipt Date: 20101203
  Transmission Date: 20110411
  Serious: Yes (Death)
  Sender: FDA-Public Use
  Company Number: JP-SANOFI-AVENTIS-2010SA073374

PATIENT

DRUGS (3)
  1. TAXOTERE [Suspect]
     Indication: HEAD AND NECK CANCER
     Route: 051
  2. 5-FU [Suspect]
     Indication: HEAD AND NECK CANCER
  3. CISPLATIN [Suspect]
     Indication: HEAD AND NECK CANCER

REACTIONS (2)
  - GASTROINTESTINAL MUCOSAL NECROSIS [None]
  - MUCOSAL NECROSIS [None]
